FAERS Safety Report 5491758-1 (Version None)
Quarter: 2007Q4

REPORT INFORMATION
  Report Type: 
  Country: None (occurrence: None)
  Receive Date: 20071022
  Receipt Date: 20071015
  Transmission Date: 20080405
  Serious: Yes (Life-Threatening, Hospitalization, Other)
  Sender: FDA-Public Use
  Company Number: HK-ASTRAZENECA-2006SE05198

PATIENT
  Age: 26666 Day
  Sex: Male

DRUGS (20)
  1. ESOMEPRAZOLE [Suspect]
     Indication: PEPTIC ULCER HAEMORRHAGE
     Route: 042
     Dates: start: 20060921, end: 20060921
  2. ESOMEPRAZOLE [Suspect]
     Route: 042
     Dates: start: 20060921, end: 20060922
  3. INDAPAMIDE [Concomitant]
     Indication: HYPERTENSION
     Route: 048
     Dates: end: 20060920
  4. DICLOFENAC SODIUM [Concomitant]
     Indication: ARTHRITIS
     Route: 048
     Dates: end: 20060920
  5. THEOPHYLLINE-SR [Concomitant]
     Indication: CHRONIC OBSTRUCTIVE PULMONARY DISEASE
     Route: 048
     Dates: end: 20060920
  6. METFORMIN HCL [Concomitant]
     Indication: DIABETES MELLITUS
     Route: 048
     Dates: end: 20060920
  7. PERINDOPRIL TERTBUTYLAMINE [Concomitant]
     Indication: HYPERTENSION
     Route: 048
     Dates: end: 20060920
  8. SALBUTAMOL [Concomitant]
     Indication: CHRONIC OBSTRUCTIVE PULMONARY DISEASE
     Route: 055
     Dates: end: 20060920
  9. SALBUTAMOL [Concomitant]
     Route: 055
     Dates: start: 20060920, end: 20060922
  10. BECLOMETHASONE DIPROPIONATE [Concomitant]
     Indication: CHRONIC OBSTRUCTIVE PULMONARY DISEASE
     Route: 055
     Dates: end: 20060920
  11. TERBUTALINE SULPHATE SR TAB [Concomitant]
     Indication: CHRONIC OBSTRUCTIVE PULMONARY DISEASE
     Route: 048
     Dates: end: 20060920
  12. ALLOPURINOL [Concomitant]
     Indication: GOUT
     Route: 048
     Dates: end: 20060920
  13. SODIUM PHOSPHATES [Concomitant]
     Indication: CONSTIPATION
     Route: 054
     Dates: start: 20060921, end: 20060921
  14. CALCIUM GLUCRONATE [Concomitant]
     Indication: HYPERKALAEMIA
     Route: 041
     Dates: start: 20060921, end: 20060921
  15. TRIGLYCERAL NITRATES [Concomitant]
     Indication: CHEST PAIN
     Route: 060
     Dates: start: 20060921, end: 20060921
  16. AMIODARONE [Concomitant]
     Indication: ANGINA UNSTABLE
     Route: 042
     Dates: start: 20060921, end: 20060922
  17. ACTRAPID [Concomitant]
     Indication: DIABETES MELLITUS
     Route: 042
     Dates: start: 20060921, end: 20060921
  18. LOPID [Concomitant]
     Indication: DIABETES MELLITUS
     Route: 048
     Dates: end: 20060920
  19. GLICLAZIDE [Concomitant]
     Indication: DIABETES MELLITUS
     Route: 048
     Dates: end: 20060920
  20. POTASSIUM CHLORIDE [Concomitant]
     Indication: SUPPLEMENTATION THERAPY
     Route: 048
     Dates: end: 20060920

REACTIONS (4)
  - ANGINA UNSTABLE [None]
  - CARDIAC FAILURE [None]
  - GASTRIC ULCER HAEMORRHAGE [None]
  - LOWER RESPIRATORY TRACT INFECTION [None]
